FAERS Safety Report 21682212 (Version 3)
Quarter: 2023Q4

REPORT INFORMATION
  Report Type: Other
  Country: DE (occurrence: None)
  Receive Date: 20221205
  Receipt Date: 20231024
  Transmission Date: 20240110
  Serious: No
  Sender: FDA-Public Use
  Company Number: DE-ROCHE-2175359

PATIENT
  Age: 56 Year
  Sex: Female

DRUGS (6)
  1. OCREVUS [Suspect]
     Active Substance: OCRELIZUMAB
     Indication: Primary progressive multiple sclerosis
     Dosage: ON 18/FEB/2020 AND 18/AUG/2020, SHE RECEIVED OCRELIZUMAB INFUSION.
     Route: 041
     Dates: start: 20180815
  2. OCREVUS [Suspect]
     Active Substance: OCRELIZUMAB
     Indication: Relapsing-remitting multiple sclerosis
     Dosage: NEXT INFUSIONS WERE ON 18/FEB/2020, 18/AUG/2020, 03/SEP/2021.
     Route: 042
     Dates: start: 20190227
  3. OCREVUS [Suspect]
     Active Substance: OCRELIZUMAB
     Route: 042
     Dates: start: 20200218
  4. OCREVUS [Suspect]
     Active Substance: OCRELIZUMAB
     Route: 042
     Dates: start: 20200818
  5. OCREVUS [Suspect]
     Active Substance: OCRELIZUMAB
     Dosage: 8TH MAINTENANCE DOSE
     Route: 042
     Dates: start: 20220915
  6. CHOLECALCIFEROL [Concomitant]
     Active Substance: CHOLECALCIFEROL
     Dosage: 20,000 IU 1X WEEKLY

REACTIONS (4)
  - Fatigue [Recovered/Resolved]
  - Heart rate increased [Recovered/Resolved]
  - Hypertension [Not Recovered/Not Resolved]
  - COVID-19 [Recovered/Resolved]

NARRATIVE: CASE EVENT DATE: 20180815
